FAERS Safety Report 8404969 (Version 4)
Quarter: 2013Q4

REPORT INFORMATION
  Report Type: Spontaneous
  Country: GB (occurrence: GB)
  Receive Date: 20120202
  Receipt Date: 20131108
  Transmission Date: 20140711
  Serious: Yes (Other)
  Sender: FDA-Public Use
  Company Number: GB-MERCK-2012SP005179

PATIENT
  Sex: Female

DRUGS (2)
  1. INTRONA [Suspect]
     Indication: PRODUCT USED FOR UNKNOWN INDICATION
  2. MK-8908 [Suspect]
     Indication: PRODUCT USED FOR UNKNOWN INDICATION

REACTIONS (2)
  - Abortion spontaneous [Unknown]
  - Exposure via father [Unknown]
